FAERS Safety Report 16421993 (Version 2)
Quarter: 2019Q3

REPORT INFORMATION
  Report Type: Report from Study
  Country: DE (occurrence: DE)
  Receive Date: 20190612
  Receipt Date: 20190919
  Transmission Date: 20191004
  Serious: Yes (Death)
  Sender: FDA-Public Use
  Company Number: DE-PFIZER INC-2019242589

PATIENT
  Age: 39 Year
  Sex: Male

DRUGS (14)
  1. METHAMPHETAMINE HCL [Suspect]
     Active Substance: METHAMPHETAMINE HYDROCHLORIDE
  2. U-47700 [Suspect]
     Active Substance: U-47700
  3. ZOLPIDEM [Suspect]
     Active Substance: ZOLPIDEM TARTRATE
  4. FENTANYL. [Suspect]
     Active Substance: FENTANYL
  5. ALPRAZOLAM. [Suspect]
     Active Substance: ALPRAZOLAM
  6. LORAZEPAM. [Suspect]
     Active Substance: LORAZEPAM
  7. TEMAZEPAM. [Suspect]
     Active Substance: TEMAZEPAM
  8. AMPHETAMINE [Suspect]
     Active Substance: AMPHETAMINE
  9. MIDAZOLAM [Suspect]
     Active Substance: MIDAZOLAM HYDROCHLORIDE
  10. DIAZEPAM. [Suspect]
     Active Substance: DIAZEPAM
  11. METHYLENEDIOXYMETHAMPHETAMINE [Suspect]
     Active Substance: MIDOMAFETAMINE
  12. NORDAZEPAM [Suspect]
     Active Substance: NORDAZEPAM
  13. BROMAZEPAM [Suspect]
     Active Substance: BROMAZEPAM
  14. OXAZEPAM. [Suspect]
     Active Substance: OXAZEPAM

REACTIONS (1)
  - Toxicity to various agents [Fatal]
